FAERS Safety Report 21253293 (Version 5)
Quarter: 2023Q1

REPORT INFORMATION
  Report Type: Report from Study
  Country: US (occurrence: US)
  Receive Date: 20220825
  Receipt Date: 20230124
  Transmission Date: 20230417
  Serious: Yes (Other)
  Sender: FDA-Public Use
  Company Number: US-NOVARTISPH-NVSC2022US189808

PATIENT
  Sex: Female

DRUGS (13)
  1. ENTRESTO [Suspect]
     Active Substance: SACUBITRIL\VALSARTAN
     Indication: Product used for unknown indication
     Dosage: 1 DOSAGE FORM, BID (97/103 MG)
     Route: 048
     Dates: start: 20220628
  2. FARXIGA [Suspect]
     Active Substance: DAPAGLIFLOZIN PROPANEDIOL
     Indication: Product used for unknown indication
     Dosage: 1 DOSAGE FORM, QD
     Route: 048
     Dates: start: 20220628
  3. NICOTINE [Suspect]
     Active Substance: NICOTINE
     Indication: Product used for unknown indication
     Dosage: 1 DOSAGE FORM, QD (30 DAYS)
     Route: 062
     Dates: start: 20220615, end: 20220715
  4. ASPIRIN [Concomitant]
     Active Substance: ASPIRIN
     Indication: Product used for unknown indication
     Dosage: 1 DOSAGE FORM, QD
     Route: 048
  5. LIPITOR [Concomitant]
     Active Substance: ATORVASTATIN CALCIUM
     Indication: Product used for unknown indication
     Dosage: 1 DOSAGE FORM, QD
     Route: 048
     Dates: start: 20220524
  6. LIORESAL [Concomitant]
     Active Substance: BACLOFEN
     Indication: Muscle spasms
     Dosage: 1 DOSAGE FORM, BID
     Route: 048
     Dates: start: 20220615, end: 20220721
  7. COREG [Concomitant]
     Active Substance: CARVEDILOL
     Indication: Product used for unknown indication
     Dosage: 1 DOSAGE FORM, BID
     Route: 048
     Dates: start: 20220628
  8. CYMBALTA [Concomitant]
     Active Substance: DULOXETINE HYDROCHLORIDE
     Indication: Bone pain
     Dosage: 1 DOSAGE FORM, BID
     Route: 048
     Dates: start: 20220505, end: 20220721
  9. CYMBALTA [Concomitant]
     Active Substance: DULOXETINE HYDROCHLORIDE
     Indication: Depression
  10. NITROSTAT [Concomitant]
     Active Substance: NITROGLYCERIN
     Indication: Chest pain
     Dosage: 1 DOSAGE FORM (EVERY 5 MINUTES AS NEEDED FOR UPTO 3 DOSES)
     Route: 060
     Dates: start: 20220627
  11. ALDACTONE [Concomitant]
     Active Substance: SPIRONOLACTONE
     Indication: Product used for unknown indication
     Dosage: 0.5 DOSAGE FORM, QD
     Route: 048
     Dates: start: 20220421
  12. BRILINTA [Concomitant]
     Active Substance: TICAGRELOR
     Indication: Product used for unknown indication
     Dosage: 1 DOSAGE FORM, BID
     Route: 048
     Dates: start: 20220421
  13. AMBIEN [Concomitant]
     Active Substance: ZOLPIDEM TARTRATE
     Indication: Sleep disorder
     Dosage: 1 DOSAGE FORM, QD (NIGHTLY)
     Route: 048
     Dates: start: 20220603, end: 20220720

REACTIONS (11)
  - Blood pressure systolic increased [Unknown]
  - Hypertension [Recovering/Resolving]
  - Oral pruritus [Recovering/Resolving]
  - Nephropathy [Unknown]
  - General physical health deterioration [Unknown]
  - Weight increased [Unknown]
  - Nausea [Unknown]
  - Pruritus [Not Recovered/Not Resolved]
  - Burning sensation [Unknown]
  - Unevaluable event [Unknown]
  - Memory impairment [Unknown]
